FAERS Safety Report 10258984 (Version 2)
Quarter: 2014Q3

REPORT INFORMATION
  Report Type: Report from Study
  Country: AR (occurrence: AR)
  Receive Date: 20140625
  Receipt Date: 20140903
  Transmission Date: 20150326
  Serious: Yes (Other)
  Sender: FDA-Public Use
  Company Number: AR-US-EMD SERONO, INC.-7300530

PATIENT
  Age: 56 Year
  Sex: Male

DRUGS (2)
  1. REBIF [Suspect]
     Active Substance: INTERFERON BETA-1A
     Indication: MULTIPLE SCLEROSIS
     Dates: start: 20000414, end: 20140527
  2. REBIF [Suspect]
     Active Substance: INTERFERON BETA-1A
     Dates: start: 20140812

REACTIONS (6)
  - Nephrolithiasis [Not Recovered/Not Resolved]
  - Paraesthesia [Recovered/Resolved]
  - Eating disorder [Unknown]
  - Drug dose omission [Unknown]
  - Feeling abnormal [Recovered/Resolved]
  - Calculus bladder [Not Recovered/Not Resolved]

NARRATIVE: CASE EVENT DATE: 201408
